FAERS Safety Report 9765698 (Version 1)
Quarter: 2013Q4

REPORT INFORMATION
  Report Type: Spontaneous
  Country: US (occurrence: None)
  Receive Date: 20131216
  Receipt Date: 20131216
  Transmission Date: 20140711
  Serious: Yes (Life-Threatening, Hospitalization, Disabling)
  Sender: FDA-Public Use
  Company Number: None

PATIENT
  Age: 29 Year
  Sex: Female
  Weight: 61.24 kg

DRUGS (1)
  1. ZOVIA [Suspect]
     Indication: CONTRACEPTION
     Dosage: 1 PILL ONCE DAILY TAKEN BY MOUTH
     Route: 048

REACTIONS (5)
  - Chest pain [None]
  - Abasia [None]
  - Benign hepatic neoplasm [None]
  - Tumour haemorrhage [None]
  - Pyrexia [None]
